FAERS Safety Report 13105329 (Version 3)
Quarter: 2017Q1

REPORT INFORMATION
  Report Type: Report from Study
  Country: US (occurrence: US)
  Receive Date: 20170111
  Receipt Date: 20170127
  Transmission Date: 20170428
  Serious: Yes (Life-Threatening, Hospitalization)
  Sender: FDA-Public Use
  Company Number: US-PFIZER INC-2016564147

PATIENT
  Age: 12 Year
  Sex: Female
  Weight: 55 kg

DRUGS (6)
  1. SERTRALINE HCL [Suspect]
     Active Substance: SERTRALINE HYDROCHLORIDE
     Indication: DEPRESSION
  2. SERTRALINE HCL [Suspect]
     Active Substance: SERTRALINE HYDROCHLORIDE
     Indication: ANXIETY
  3. TYLENOL [Suspect]
     Active Substance: ACETAMINOPHEN
     Dosage: 6000 MG, ONE TIME
     Route: 048
     Dates: start: 20161127, end: 20161127
  4. SERTRALINE HCL [Suspect]
     Active Substance: SERTRALINE HYDROCHLORIDE
     Indication: ANTIDEPRESSANT THERAPY
     Dosage: 50 MG, 1X/DAY
     Route: 048
     Dates: start: 20160412, end: 201606
  5. ABILIFY [Suspect]
     Active Substance: ARIPIPRAZOLE
     Indication: MOOD SWINGS
     Dosage: 2 MG, QD AFTER DINNER
     Route: 048
     Dates: start: 20161202
  6. ADVIL [Suspect]
     Active Substance: IBUPROFEN
     Dosage: 2000 MG, ONE TIME
     Route: 048
     Dates: start: 20161127, end: 20161127

REACTIONS (2)
  - Suicide attempt [Recovered/Resolved]
  - Overdose [Recovered/Resolved]

NARRATIVE: CASE EVENT DATE: 20161127
